FAERS Safety Report 9744479 (Version 1)
Quarter: 2013Q4

REPORT INFORMATION
  Report Type: Spontaneous
  Country: US (occurrence: US)
  Receive Date: 20131210
  Receipt Date: 20131210
  Transmission Date: 20140711
  Serious: No
  Sender: FDA-Public Use
  Company Number: US-TEVA-450276USA

PATIENT
  Age: 23 Year
  Sex: Female

DRUGS (1)
  1. FENTANYL [Suspect]
     Route: 048

REACTIONS (3)
  - Somnolence [Recovered/Resolved]
  - Lethargy [Recovered/Resolved]
  - Intentional drug misuse [Unknown]
